FAERS Safety Report 5100844-7 (Version None)
Quarter: 2006Q3

REPORT INFORMATION
  Report Type: 
  Country: None (occurrence: None)
  Receive Date: 20060906
  Receipt Date: 20060821
  Transmission Date: 20061208
  Serious: Yes (Other)
  Sender: FDA-Public Use
  Company Number: 2006103068

PATIENT
  Age: 16 Year
  Sex: Male

DRUGS (1)
  1. SOLU-MEDROL [Suspect]
     Indication: URTICARIA
     Dosage: 125 MG (125 MG,1 IN 1 D)
     Dates: start: 20060101, end: 20060101

REACTIONS (2)
  - DIZZINESS [None]
  - DYSPNOEA [None]
